FAERS Safety Report 9149939 (Version 1)
Quarter: 2013Q1

REPORT INFORMATION
  Report Type: Spontaneous
  Country: US (occurrence: US)
  Receive Date: 20130308
  Receipt Date: 20130308
  Transmission Date: 20140127
  Serious: No
  Sender: FDA-Public Use
  Company Number: US-ENDO PHARMACEUTICALS INC.-OPCR20120692

PATIENT
  Age: 44 Year
  Sex: Female

DRUGS (3)
  1. OPANA ER [Suspect]
     Indication: PAIN
     Route: 048
     Dates: start: 201204
  2. OPANA ER [Suspect]
     Indication: POLYARTHRITIS
  3. OPANA ER [Suspect]
     Indication: INTERVERTEBRAL DISC PROTRUSION

REACTIONS (5)
  - Muscle spasms [Not Recovered/Not Resolved]
  - Dyskinesia [Not Recovered/Not Resolved]
  - Dreamy state [Not Recovered/Not Resolved]
  - Mental impairment [Not Recovered/Not Resolved]
  - Withdrawal syndrome [Not Recovered/Not Resolved]
